FAERS Safety Report 6471186-2 (Version None)
Quarter: 2009Q4

REPORT INFORMATION
  Report Type: 
  Country: None (occurrence: None)
  Receive Date: 20091203
  Receipt Date: 20080624
  Transmission Date: 20100525
  Serious: Yes (Life-Threatening, Hospitalization, Other)
  Sender: FDA-Public Use
  Company Number: ZA-ELI_LILLY_AND_COMPANY-ZA200802000105

PATIENT
  Sex: Female
  Weight: 49 kg

DRUGS (12)
  1. CAPASTAT SULFATE [Suspect]
     Indication: TUBERCULOSIS
     Dosage: 750 MG, DAILY (1/D)
     Route: 030
     Dates: start: 20071115
  2. CAPASTAT SULFATE [Suspect]
     Dosage: 750 MG, 3/W
     Route: 030
     Dates: end: 20080107
  3. CAPASTAT SULFATE [Suspect]
     Dosage: 500 MG, 3/D
     Route: 030
     Dates: start: 20080226
  4. P.A.S. [Concomitant]
     Indication: TUBERCULOSIS
     Dosage: 4 G, 2/D
     Route: 065
     Dates: start: 20071115
  5. OFLOXACIN [Concomitant]
     Indication: TUBERCULOSIS
     Dosage: 800 MG, DAILY (1/D)
     Route: 048
     Dates: start: 20070307
  6. ETHIONAMIDE [Concomitant]
     Indication: TUBERCULOSIS
     Dosage: 500 MG, DAILY (1/D)
     Route: 048
  7. TERIZIDONE [Concomitant]
     Indication: TUBERCULOSIS
     Dosage: 500 MG, DAILY (1/D)
     Route: 048
     Dates: start: 20070307
  8. PYRAZINAMIDE [Concomitant]
     Indication: TUBERCULOSIS
     Dosage: 150 MG, DAILY (1/D)
     Route: 048
     Dates: start: 20071115
  9. PYRIDOXINE [Concomitant]
     Indication: TUBERCULOSIS
     Dosage: 1 G, DAILY (1/D)
     Route: 048
     Dates: start: 20070307
  10. LAMIVUDINE [Concomitant]
     Indication: HYPOKALAEMIA
     Dosage: 150 MG, 2/D
     Route: 065
     Dates: start: 20080110
  11. STAVUDINE [Concomitant]
     Indication: HIV INFECTION
     Dosage: 300 MG, 2/D
     Route: 065
     Dates: start: 20080110
  12. EFAVIRENZ [Concomitant]
     Indication: HIV INFECTION
     Dosage: 600 MG, AT NIGHT
     Route: 048
     Dates: start: 20080110

REACTIONS (3)
  - BLOOD THYROID STIMULATING HORMONE INCREASED [None]
  - HYPOKALAEMIA [None]
  - RENAL FAILURE ACUTE [None]
